FAERS Safety Report 14081954 (Version 1)
Quarter: 2017Q4

REPORT INFORMATION
  Report Type: Spontaneous
  Country: IN (occurrence: IN)
  Receive Date: 20171012
  Receipt Date: 20171012
  Transmission Date: 20180321
  Serious: Yes (Hospitalization)
  Sender: FDA-Public Use
  Company Number: IN-MYLANLABS-2017M1063475

PATIENT
  Age: 42 Year
  Sex: Male

DRUGS (2)
  1. CARISOPRODOL. [Suspect]
     Active Substance: CARISOPRODOL
     Indication: PRODUCT USED FOR UNKNOWN INDICATION
     Dosage: 10-15 TABLETS DAILY (5250MG/DAY) FOLLOWED BY 30 TABLETS DAILY (10500MG/DAY)
     Route: 048
  2. CARISOPRODOL. [Suspect]
     Active Substance: CARISOPRODOL
     Dosage: 30 TABLETS DAILY (10500MG/DAY)
     Route: 048

REACTIONS (8)
  - Pain [Unknown]
  - Withdrawal syndrome [Recovering/Resolving]
  - Drug dependence [Unknown]
  - Anxiety [Recovering/Resolving]
  - Insomnia [Recovering/Resolving]
  - Feeling abnormal [Unknown]
  - Restlessness [Unknown]
  - Intentional overdose [Unknown]
